FAERS Safety Report 21446687 (Version 3)
Quarter: 2022Q4

REPORT INFORMATION
  Report Type: Spontaneous
  Country: US (occurrence: US)
  Receive Date: 20221012
  Receipt Date: 20221227
  Transmission Date: 20230112
  Serious: No
  Sender: FDA-Public Use
  Company Number: US-PFIZER INC-PV202200080397

PATIENT
  Age: 61 Year
  Sex: Female

DRUGS (2)
  1. RETACRIT [Suspect]
     Active Substance: EPOETIN ALFA-EPBX
     Indication: Iron deficiency anaemia
     Dosage: 60000 IU
  2. RETACRIT [Suspect]
     Active Substance: EPOETIN ALFA-EPBX
     Dosage: UNK, (10000 UN/ML 40000 UN/ML/ STATES ^Q 7 DAYS^)

REACTIONS (2)
  - Blood test abnormal [Unknown]
  - Illness [Unknown]
